FAERS Safety Report 14299842 (Version 1)
Quarter: 2017Q4

REPORT INFORMATION
  Report Type: Report from Study
  Country: US (occurrence: US)
  Receive Date: 20171219
  Receipt Date: 20171219
  Transmission Date: 20180321
  Serious: No
  Sender: FDA-Public Use
  Company Number: US-ROCHE-2039630

PATIENT
  Sex: Female

DRUGS (1)
  1. OCREVUS [Suspect]
     Active Substance: OCRELIZUMAB
     Indication: MULTIPLE SCLEROSIS
     Dosage: ONGOING: UNKNOWN?PATIENT WAS PRESCRIBED OCRELIZUMAB 300 MG ON DAY 1 AND DAY 15 FOLLWED BY 600 MG EVE
     Route: 042

REACTIONS (6)
  - Chills [Unknown]
  - Myalgia [Unknown]
  - Influenza [Unknown]
  - Bone pain [Unknown]
  - Hot flush [Unknown]
  - Pyrexia [Unknown]
